FAERS Safety Report 18082212 (Version 1)
Quarter: 2020Q3

REPORT INFORMATION
  Report Type: Spontaneous
  Country: CN (occurrence: CN)
  Receive Date: 20200729
  Receipt Date: 20200729
  Transmission Date: 20201103
  Serious: Yes (Other)
  Sender: FDA-Public Use
  Company Number: CN-ROCHE-2648539

PATIENT
  Age: 47 Year
  Sex: Male
  Weight: 45 kg

DRUGS (18)
  1. VINDESINE [Concomitant]
     Active Substance: VINDESINE
  2. DEXAMETHASONE. [Concomitant]
     Active Substance: DEXAMETHASONE
  3. MABTHERA [Suspect]
     Active Substance: RITUXIMAB
     Route: 042
     Dates: start: 20190323
  4. MABTHERA [Suspect]
     Active Substance: RITUXIMAB
     Route: 041
     Dates: start: 20190928
  5. MABTHERA [Suspect]
     Active Substance: RITUXIMAB
     Route: 042
     Dates: start: 20200210
  6. LENALIDOMIDE [Concomitant]
     Active Substance: LENALIDOMIDE
  7. METHYLPREDNISOLONE. [Concomitant]
     Active Substance: METHYLPREDNISOLONE
  8. MABTHERA [Suspect]
     Active Substance: RITUXIMAB
     Route: 041
     Dates: start: 20191210
  9. VINCRISTINE [Concomitant]
     Active Substance: VINCRISTINE
  10. MABTHERA [Suspect]
     Active Substance: RITUXIMAB
     Route: 042
     Dates: start: 20191111
  11. MABTHERA [Suspect]
     Active Substance: RITUXIMAB
     Route: 041
     Dates: start: 20200310
  12. EPIRUBICIN [Concomitant]
     Active Substance: EPIRUBICIN
  13. DOXORUBICIN [Concomitant]
     Active Substance: DOXORUBICIN
  14. MABTHERA [Suspect]
     Active Substance: RITUXIMAB
     Indication: B-CELL LYMPHOMA
     Route: 042
  15. MABTHERA [Suspect]
     Active Substance: RITUXIMAB
     Route: 042
  16. CYCLOPHOSPHAMIDE. [Concomitant]
     Active Substance: CYCLOPHOSPHAMIDE
  17. ETOPOSIDE. [Concomitant]
     Active Substance: ETOPOSIDE
  18. BENDAMUSTINE [Concomitant]
     Active Substance: BENDAMUSTINE

REACTIONS (7)
  - Melaena [Unknown]
  - Gastrointestinal haemorrhage [Recovered/Resolved]
  - Haemoglobin decreased [Unknown]
  - Abdominal pain [Unknown]
  - Diarrhoea [Unknown]
  - Iron deficiency anaemia [Unknown]
  - Fatigue [Unknown]
